FAERS Safety Report 7202464-7 (Version None)
Quarter: 2010Q4

REPORT INFORMATION
  Report Type: 
  Country: None (occurrence: None)
  Receive Date: 20101229
  Receipt Date: 20101222
  Transmission Date: 20110411
  Serious: Yes (Hospitalization)
  Sender: FDA-Public Use
  Company Number: B0690472A

PATIENT
  Age: 71 Year
  Sex: Female

DRUGS (1)
  1. CLAVENTIN [Suspect]
     Indication: ACINETOBACTER INFECTION
     Dosage: 4G THREE TIMES PER DAY
     Route: 042
     Dates: start: 20101115, end: 20101125

REACTIONS (2)
  - EOSINOPHILIA [None]
  - PRURITUS [None]
